FAERS Safety Report 9939639 (Version 1)
Quarter: 2014Q1

REPORT INFORMATION
  Report Type: Report from Study
  Country: US (occurrence: US)
  Receive Date: 20140303
  Receipt Date: 20140303
  Transmission Date: 20141002
  Serious: No
  Sender: FDA-Public Use
  Company Number: US-ABBVIE-13P-163-1057011-00

PATIENT
  Age: 64 Year
  Sex: Female

DRUGS (2)
  1. HUMIRA [Suspect]
     Indication: CROHN^S DISEASE
  2. ORAL DIABETIC MEDICATION [Concomitant]
     Indication: DIABETES MELLITUS
     Route: 048

REACTIONS (3)
  - Wrong technique in drug usage process [Unknown]
  - Incorrect dose administered [Unknown]
  - Incorrect route of drug administration [Unknown]
